FAERS Safety Report 17563696 (Version 6)
Quarter: 2022Q1

REPORT INFORMATION
  Report Type: Spontaneous
  Country: US (occurrence: US)
  Receive Date: 20200320
  Receipt Date: 20220202
  Transmission Date: 20220423
  Serious: Yes (Death, Life-Threatening, Hospitalization, Other)
  Sender: FDA-Public Use
  Company Number: None

PATIENT
  Age: 65 Year
  Sex: Female

DRUGS (7)
  1. QUETIAPINE [Interacting]
     Active Substance: QUETIAPINE
     Indication: Product used for unknown indication
     Route: 048
  2. VALPROIC ACID [Interacting]
     Active Substance: VALPROIC ACID
     Indication: Product used for unknown indication
     Route: 048
  3. RANOLAZINE [Interacting]
     Active Substance: RANOLAZINE
     Indication: Product used for unknown indication
     Route: 048
  4. MIRTAZAPINE [Interacting]
     Active Substance: MIRTAZAPINE
     Indication: Product used for unknown indication
     Route: 048
  5. TRAZODONE [Interacting]
     Active Substance: TRAZODONE HYDROCHLORIDE
     Indication: Product used for unknown indication
  6. GABAPENTIN [Interacting]
     Active Substance: GABAPENTIN
     Indication: Product used for unknown indication
  7. RIVAROXABAN [Concomitant]
     Active Substance: RIVAROXABAN
     Indication: Product used for unknown indication

REACTIONS (14)
  - Drug level increased [Fatal]
  - Toxicity to various agents [Fatal]
  - Pulseless electrical activity [Fatal]
  - Drug interaction [Fatal]
  - Cardiac arrest [Fatal]
  - Intentional overdose [Fatal]
  - Hypoxia [Unknown]
  - Pulmonary oedema [Unknown]
  - Tonic clonic movements [Unknown]
  - Hypotension [Unknown]
  - Somnolence [Unknown]
  - Hyperhidrosis [Unknown]
  - Bradycardia [Unknown]
  - Electrocardiogram QT prolonged [Unknown]
